FAERS Safety Report 5442325-7 (Version None)
Quarter: 2007Q3

REPORT INFORMATION
  Report Type: 
  Country: None (occurrence: None)
  Receive Date: 20070904
  Receipt Date: 20070823
  Transmission Date: 20080115
  Serious: Yes (Other)
  Sender: FDA-Public Use
  Company Number: US-PFIZER INC-2006152088

PATIENT
  Sex: Male
  Weight: 117 kg

DRUGS (4)
  1. SUTENT [Suspect]
     Indication: METASTASIS
  2. LANTHANUM CARBONATE [Concomitant]
  3. INSULIN [Concomitant]
  4. VITAMIN D [Concomitant]

REACTIONS (3)
  - BLOOD CALCIUM DECREASED [None]
  - BLOOD PHOSPHORUS INCREASED [None]
  - DIALYSIS [None]
